FAERS Safety Report 7964742-3 (Version None)
Quarter: 2011Q4

REPORT INFORMATION
  Report Type: 
  Country: None (occurrence: None)
  Receive Date: 20111208
  Receipt Date: 20111125
  Transmission Date: 20120403
  Serious: Yes (Other)
  Sender: FDA-Public Use
  Company Number: KZ-ELI_LILLY_AND_COMPANY-KZ201104001240

PATIENT
  Sex: Female

DRUGS (20)
  1. HIDROCORTIZON [Concomitant]
  2. DEXAMETHASONE [Concomitant]
  3. HEPARIN [Concomitant]
  4. REOPOLYGLUKIN [Concomitant]
  5. CYCLODOL [Concomitant]
  6. DIAZEPAM [Concomitant]
     Route: 042
  7. ATROPINE [Concomitant]
  8. PREDNISOLONE [Concomitant]
  9. ZYPREXA [Suspect]
     Dosage: UNK UNK, DAILY (1/D)
     Route: 030
  10. INFESOL 40 [Concomitant]
  11. PIRACETAM [Concomitant]
  12. PANANGIN [Concomitant]
  13. SENORM [Concomitant]
     Dosage: UNK
     Route: 042
  14. METRONIDAZOLE [Concomitant]
  15. ACTOVEGIN [Concomitant]
  16. AMINAZIN [Concomitant]
     Indication: CARDIAC FIBRILLATION
     Dosage: 250 MG, UNK
  17. INVEGA [Concomitant]
  18. CHLORPROMAZINE [Concomitant]
  19. SODIUM HYPOCHLORITE [Concomitant]
  20. POLYGLUCIN [Concomitant]

REACTIONS (9)
  - PNEUMONIA [None]
  - DECUBITUS ULCER [None]
  - FEBRILE CONVULSION [None]
  - OVERDOSE [None]
  - NEUROLEPTIC MALIGNANT SYNDROME [None]
  - CATATONIA [None]
  - VITAL FUNCTIONS ABNORMAL [None]
  - INCORRECT ROUTE OF DRUG ADMINISTRATION [None]
  - BLOOD ALBUMIN DECREASED [None]
